FAERS Safety Report 8506771-7 (Version None)
Quarter: 2012Q3

REPORT INFORMATION
  Report Type: 
  Country: None (occurrence: None)
  Receive Date: 20120712
  Receipt Date: 20120709
  Transmission Date: 20120928
  Serious: No
  Sender: FDA-Public Use
  Company Number: US-PFIZER INC-2012164002

PATIENT
  Sex: Female

DRUGS (1)
  1. SUTENT [Suspect]
     Indication: HEPATIC NEOPLASM MALIGNANT
     Dosage: 25 MG, UNK
     Dates: start: 20120411, end: 20120709

REACTIONS (1)
  - HYPERSENSITIVITY [None]
